FAERS Safety Report 24283271 (Version 1)
Quarter: 2024Q3

REPORT INFORMATION
  Report Type: Spontaneous
  Country: US (occurrence: None)
  Receive Date: 20240903
  Receipt Date: 20240903
  Transmission Date: 20241016
  Serious: Yes (Other)
  Sender: Public
  Company Number: None

PATIENT
  Age: 62 Year
  Sex: Male
  Weight: 163.35 kg

DRUGS (12)
  1. OZEMPIC [Suspect]
     Active Substance: SEMAGLUTIDE
     Indication: Diabetes mellitus
     Dosage: OTHER FREQUENCY : ONCE PER WEEK;?OTHER ROUTE : INJECTION INTO TORSO;?
     Route: 050
     Dates: start: 20240717, end: 20240828
  2. OZEMPIC [Suspect]
     Active Substance: SEMAGLUTIDE
     Indication: Weight control
  3. dofedilide [Concomitant]
  4. ENALAPRIL [Concomitant]
  5. XARELTO [Concomitant]
  6. thorosemide [Concomitant]
  7. POTASSIUM [Concomitant]
  8. VITAMIN B [Concomitant]
     Active Substance: VITAMIN B
  9. MAGNESIUM [Concomitant]
  10. SELENIUM [Concomitant]
  11. vit A [Concomitant]
  12. NAC [Concomitant]

REACTIONS (2)
  - Anxiety [None]
  - Suicidal ideation [None]

NARRATIVE: CASE EVENT DATE: 20240720
